FAERS Safety Report 6233781-5 (Version None)
Quarter: 2009Q2

REPORT INFORMATION
  Report Type: 
  Country: None (occurrence: None)
  Receive Date: 20090612
  Receipt Date: 20090612
  Transmission Date: 20091009
  Serious: Yes (Hospitalization)
  Sender: FDA-Public Use
  Company Number: None

PATIENT
  Sex: Male
  Weight: 62.4 kg

DRUGS (9)
  1. RITUXIMAB 2 MG/ML GENETECH [Suspect]
     Indication: HAIRY CELL LEUKAEMIA
     Dosage: 375 MG/M2
     Dates: start: 20090410, end: 20090528
  2. RITUXIMAB 2 MG/ML GENETECH [Suspect]
     Indication: HAIRY CELL LEUKAEMIA
     Dates: start: 20090410, end: 20090528
  3. CLADRIBINE 1MG/ML VEDFORD [Suspect]
     Indication: HAIRY CELL LEUKAEMIA
     Dosage: 0.15 MG/KG
     Dates: start: 20090410, end: 20090414
  4. TYLENOL (CAPLET) [Concomitant]
  5. TAMSULOSIN HCL [Concomitant]
  6. COLASE [Concomitant]
  7. OMEPRAZOLE [Concomitant]
  8. BACTRIM [Concomitant]
  9. ASPIRIN [Concomitant]

REACTIONS (5)
  - MYCOBACTERIAL INFECTION [None]
  - NEUTROPENIA [None]
  - NO THERAPEUTIC RESPONSE [None]
  - PANCYTOPENIA [None]
  - SPLENIC INFECTION BACTERIAL [None]
